FAERS Safety Report 6638046-5 (Version None)
Quarter: 2010Q1

REPORT INFORMATION
  Report Type: 
  Country: None (occurrence: None)
  Receive Date: 20100317
  Receipt Date: 20100305
  Transmission Date: 20100710
  Serious: Yes (Hospitalization)
  Sender: FDA-Public Use
  Company Number: FR-PFIZER INC-2010029209

PATIENT
  Age: 10 Year
  Sex: Female
  Weight: 29 kg

DRUGS (3)
  1. ZITHROMAX [Suspect]
     Indication: COUGH
     Dosage: 600 MG, SINGLE
     Route: 048
     Dates: start: 20100212, end: 20100212
  2. ADVIL LIQUI-GELS [Suspect]
     Indication: COUGH
     Dosage: 1 DF, SINGLE
     Route: 048
     Dates: start: 20100212, end: 20100212
  3. HELICIDINE [Suspect]
     Indication: COUGH
     Dosage: 15 ML, SINGLE
     Route: 048
     Dates: start: 20100212, end: 20100212

REACTIONS (1)
  - CYTOLYTIC HEPATITIS [None]
